FAERS Safety Report 13660688 (Version 1)
Quarter: 2017Q2

REPORT INFORMATION
  Report Type: Spontaneous
  Country: US (occurrence: US)
  Receive Date: 20170616
  Receipt Date: 20170616
  Transmission Date: 20170830
  Serious: Yes (Other)
  Sender: FDA-Public Use
  Company Number: US-BRISTOL-MYERS SQUIBB COMPANY-BMS-2017-051290

PATIENT
  Age: 60 Year
  Sex: Female

DRUGS (9)
  1. VALTREX [Suspect]
     Active Substance: VALACYCLOVIR HYDROCHLORIDE
     Indication: GENITAL HERPES
     Dosage: 1 G, QD
     Route: 065
     Dates: start: 2009
  2. REMERON [Suspect]
     Active Substance: MIRTAZAPINE
     Indication: DEPRESSION
     Dosage: UNK
     Route: 065
     Dates: start: 2014
  3. BUPROPION. [Suspect]
     Active Substance: BUPROPION
     Indication: PRODUCT USED FOR UNKNOWN INDICATION
     Dosage: 100 MG, UNK
     Route: 065
  4. BUPROPION. [Suspect]
     Active Substance: BUPROPION
     Indication: PRODUCT USED FOR UNKNOWN INDICATION
     Dosage: 450 MG, UNK
     Route: 065
  5. OMEGA 3                            /01333901/ [Concomitant]
     Active Substance: FISH OIL\TOCOPHEROL
     Indication: PRODUCT USED FOR UNKNOWN INDICATION
     Route: 065
  6. ABILIFY [Suspect]
     Active Substance: ARIPIPRAZOLE
     Indication: DEPRESSION
     Route: 065
  7. BUPROPION. [Suspect]
     Active Substance: BUPROPION
     Indication: DEPRESSION
     Dosage: 75 MG, UNK
     Route: 065
  8. LEVOTHYROXINE. [Concomitant]
     Active Substance: LEVOTHYROXINE
     Indication: PRODUCT USED FOR UNKNOWN INDICATION
     Route: 065
  9. BUPROPION. [Suspect]
     Active Substance: BUPROPION
     Indication: PRODUCT USED FOR UNKNOWN INDICATION
     Dosage: 75 MG, UNK
     Route: 065

REACTIONS (18)
  - Condition aggravated [Recovering/Resolving]
  - Depression [Recovering/Resolving]
  - Psychotic disorder [Recovering/Resolving]
  - Mental disorder [Unknown]
  - Psychiatric symptom [Recovering/Resolving]
  - Inappropriate prescribing [Unknown]
  - Persistent depressive disorder [Recovering/Resolving]
  - Micturition disorder [Unknown]
  - Insomnia [Recovering/Resolving]
  - Dysphagia [Unknown]
  - Nausea [Unknown]
  - Abdominal discomfort [Unknown]
  - Encephalopathy [Unknown]
  - Drug ineffective [Unknown]
  - Renal disorder [Unknown]
  - Mood swings [Unknown]
  - Tremor [Unknown]
  - Fatigue [Unknown]

NARRATIVE: CASE EVENT DATE: 2010
